FAERS Safety Report 6148634-0 (Version None)
Quarter: 2009Q2

REPORT INFORMATION
  Report Type: 
  Country: None (occurrence: None)
  Receive Date: 20090408
  Receipt Date: 20090331
  Transmission Date: 20091009
  Serious: Yes (Hospitalization)
  Sender: FDA-Public Use
  Company Number: IT-WATSON-2009-02203

PATIENT
  Age: 22 Year
  Sex: Female

DRUGS (2)
  1. MORPHINE SULFATE INJ [Suspect]
     Indication: PAIN
     Dosage: 20 UG/KG, Q1H
  2. DIMETHYL SULFOXIDE [Suspect]
     Indication: STEM CELL TRANSPLANT
     Dosage: 444 MG/KG, UNK

REACTIONS (3)
  - DRUG INTERACTION [None]
  - RESPIRATORY DEPRESSION [None]
  - SOMNOLENCE [None]
